FAERS Safety Report 22096993 (Version 1)
Quarter: 2023Q1

REPORT INFORMATION
  Report Type: Spontaneous
  Country: CA (occurrence: CA)
  Receive Date: 20230315
  Receipt Date: 20230315
  Transmission Date: 20230417
  Serious: Yes (Death, Hospitalization, Other)
  Sender: FDA-Public Use
  Company Number: CA-ADVANZ PHARMA-202209006392

PATIENT
  Age: 63 Year
  Sex: Female

DRUGS (2)
  1. OCALIVA [Suspect]
     Active Substance: OBETICHOLIC ACID
     Indication: Primary biliary cholangitis
     Dosage: 5 MG, QD (OCALIVA)
     Route: 048
     Dates: start: 20180730
  2. URSODIOL [Concomitant]
     Active Substance: URSODIOL
     Dosage: 2 G, QD

REACTIONS (2)
  - Hepatic failure [Fatal]
  - Limb injury [Unknown]

NARRATIVE: CASE EVENT DATE: 20220922
